FAERS Safety Report 19790298 (Version 1)
Quarter: 2021Q3

REPORT INFORMATION
  Report Type: Spontaneous
  Country: US (occurrence: US)
  Receive Date: 20210906
  Receipt Date: 20210906
  Transmission Date: 20211014
  Serious: Yes (Hospitalization, Disabling)
  Sender: FDA-Public Use
  Company Number: US-BIOGEN-2021BI01043639

PATIENT
  Age: 8 Year
  Sex: Female
  Weight: 37 kg

DRUGS (16)
  1. APITEGROMAB. [Suspect]
     Active Substance: APITEGROMAB
     Route: 042
     Dates: start: 20191017, end: 20191017
  2. APITEGROMAB. [Suspect]
     Active Substance: APITEGROMAB
     Route: 042
     Dates: start: 20200205, end: 20200205
  3. APITEGROMAB. [Suspect]
     Active Substance: APITEGROMAB
     Route: 042
     Dates: start: 20200625, end: 20200625
  4. CALCIUM [Concomitant]
     Active Substance: CALCIUM
     Indication: PRODUCT USED FOR UNKNOWN INDICATION
     Route: 065
     Dates: start: 20200603
  5. APITEGROMAB. [Suspect]
     Active Substance: APITEGROMAB
     Route: 042
     Dates: start: 20191114, end: 20191114
  6. APITEGROMAB. [Suspect]
     Active Substance: APITEGROMAB
     Route: 042
     Dates: start: 20200305, end: 20200305
  7. APITEGROMAB. [Suspect]
     Active Substance: APITEGROMAB
     Route: 042
     Dates: start: 20200402, end: 20200402
  8. APITEGROMAB. [Suspect]
     Active Substance: APITEGROMAB
     Route: 042
     Dates: start: 20200107, end: 20200107
  9. MOMETASONE [Concomitant]
     Active Substance: MOMETASONE
     Indication: PRODUCT USED FOR UNKNOWN INDICATION
     Route: 065
     Dates: start: 20170120
  10. SPINRAZA [Suspect]
     Active Substance: NUSINERSEN
     Indication: SPINAL MUSCULAR ATROPHY
     Route: 065
     Dates: start: 201807, end: 20200813
  11. APITEGROMAB. [Suspect]
     Active Substance: APITEGROMAB
     Indication: SPINAL MUSCULAR ATROPHY
     Route: 042
     Dates: start: 20190823, end: 20190823
  12. APITEGROMAB. [Suspect]
     Active Substance: APITEGROMAB
     Route: 042
     Dates: start: 20190919, end: 20190919
  13. APITEGROMAB. [Suspect]
     Active Substance: APITEGROMAB
     Route: 042
     Dates: start: 20200430, end: 20200430
  14. COLECALCIFEROL [Concomitant]
     Active Substance: CHOLECALCIFEROL
     Indication: PRODUCT USED FOR UNKNOWN INDICATION
     Route: 065
     Dates: start: 20200111
  15. APITEGROMAB. [Suspect]
     Active Substance: APITEGROMAB
     Route: 042
     Dates: start: 20200528, end: 20200528
  16. APITEGROMAB. [Suspect]
     Active Substance: APITEGROMAB
     Route: 042
     Dates: start: 20200806, end: 20200806

REACTIONS (1)
  - Developmental hip dysplasia [Recovered/Resolved]

NARRATIVE: CASE EVENT DATE: 20200527
